FAERS Safety Report 4807362-1 (Version None)
Quarter: 2005Q4

REPORT INFORMATION
  Report Type: 
  Country: None (occurrence: None)
  Receive Date: 20051024
  Receipt Date: 20050209
  Transmission Date: 20060501
  Serious: Yes (Hospitalization, Disabling)
  Sender: FDA-Public Use
  Company Number: US-MERCK-0502USA01334

PATIENT
  Age: 79 Year
  Sex: Male
  Weight: 85 kg

DRUGS (4)
  1. VIOXX [Suspect]
     Indication: BACK PAIN
     Route: 048
     Dates: start: 19990101, end: 20040201
  2. VIOXX [Suspect]
     Route: 048
     Dates: start: 19990101, end: 20040201
  3. VIOXX [Suspect]
     Indication: BONE PAIN
     Route: 048
     Dates: start: 19990101, end: 20040201
  4. VIOXX [Suspect]
     Route: 048
     Dates: start: 19990101, end: 20040201

REACTIONS (2)
  - CEREBROVASCULAR ACCIDENT [None]
  - COMA [None]
